FAERS Safety Report 6419577-X (Version None)
Quarter: 2009Q4

REPORT INFORMATION
  Report Type: 
  Country: None (occurrence: None)
  Receive Date: 20091027
  Receipt Date: 20091019
  Transmission Date: 20100525
  Serious: Yes (Hospitalization, Other)
  Sender: FDA-Public Use
  Company Number: 230730J08CAN

PATIENT
  Age: 55 Year
  Sex: Male

DRUGS (9)
  1. REBIF [Suspect]
     Indication: RELAPSING-REMITTING MULTIPLE SCLEROSIS
     Dosage: 44 MCG, 3 IN 1 WEEKS, SUBCUTANEOUS
     Route: 058
     Dates: start: 20060914, end: 20090201
  2. REBIF [Suspect]
     Indication: RELAPSING-REMITTING MULTIPLE SCLEROSIS
     Dosage: 44 MCG, 3 IN 1 WEEKS, SUBCUTANEOUS
     Route: 058
     Dates: start: 20090717
  3. CARBAMAZEPINE [Concomitant]
  4. AMITRIPTYLINE /00002201/ [Concomitant]
  5. CARBAMAZEPINE [Concomitant]
  6. CITALOPRAM (CITALOPRAM /00582601/) [Concomitant]
  7. CLAVEX [CO-AMOXICLAV] (AMOXICILLIN W/ CLAVULANATE) [Concomitant]
  8. RAMIPRIL (RAMIPRIL /00885601/) [Concomitant]
  9. PANTOPRAZOLE SODIUM [Concomitant]

REACTIONS (21)
  - BLOOD CHOLESTEROL INCREASED [None]
  - CONVULSION [None]
  - CORONARY ARTERY OCCLUSION [None]
  - DECREASED APPETITE [None]
  - DISTURBANCE IN ATTENTION [None]
  - FATIGUE [None]
  - FEELING ABNORMAL [None]
  - GAIT DISTURBANCE [None]
  - GRIP STRENGTH DECREASED [None]
  - HAEMORRHAGE [None]
  - HEAD INJURY [None]
  - HEART RATE DECREASED [None]
  - HYPOAESTHESIA [None]
  - LOSS OF CONSCIOUSNESS [None]
  - MEMORY IMPAIRMENT [None]
  - MYOCARDIAL INFARCTION [None]
  - NAUSEA [None]
  - PERIPHERAL COLDNESS [None]
  - UNEVALUABLE EVENT [None]
  - VISUAL IMPAIRMENT [None]
  - WEIGHT DECREASED [None]
